FAERS Safety Report 4558336-X (Version None)
Quarter: 2005Q1

REPORT INFORMATION
  Report Type: 
  Country: None (occurrence: None)
  Receive Date: 20050121
  Receipt Date: 20040414
  Transmission Date: 20050727
  Serious: No
  Sender: FDA-Public Use
  Company Number: US-BRISTOL-MYERS SQUIBB COMPANY-12561288

PATIENT
  Age: 5 Year
  Sex: Male
  Weight: 21 kg

DRUGS (2)
  1. CEFZIL [Suspect]
     Indication: PHARYNGITIS STREPTOCOCCAL
     Route: 048
     Dates: start: 20040405, end: 20040407
  2. ALBUTEROL [Concomitant]
     Route: 055

REACTIONS (2)
  - FEELING HOT [None]
  - HYPERHIDROSIS [None]
